FAERS Safety Report 6263781-0 (Version None)
Quarter: 2009Q3

REPORT INFORMATION
  Report Type: 
  Country: None (occurrence: None)
  Receive Date: 20090710
  Receipt Date: 20090707
  Transmission Date: 20100115
  Serious: Yes (Death, Hospitalization)
  Sender: FDA-Public Use
  Company Number: PHHY2008CA10848

PATIENT
  Sex: Female

DRUGS (1)
  1. SANDOSTATIN LAR [Suspect]
     Indication: PANCREATIC NEUROENDOCRINE TUMOUR
     Dosage: 20 MG, EVERY 4 WEEKS
     Route: 030
     Dates: start: 20041105, end: 20090610

REACTIONS (2)
  - DEATH [None]
  - VASCULAR DEMENTIA [None]
